FAERS Safety Report 17894659 (Version 3)
Quarter: 2020Q3

REPORT INFORMATION
  Report Type: Spontaneous
  Country: US (occurrence: US)
  Receive Date: 20200615
  Receipt Date: 20200705
  Transmission Date: 20201103
  Serious: No
  Sender: FDA-Public Use
  Company Number: US-ELI_LILLY_AND_COMPANY-US202006005411

PATIENT
  Sex: Female

DRUGS (2)
  1. HUMALOG [Suspect]
     Active Substance: INSULIN LISPRO
     Indication: TYPE 1 DIABETES MELLITUS
     Dosage: 250 U, PRN (UP TO 250 UNITS OF INSULIN PER DAY)
     Route: 058
     Dates: start: 197106
  2. HUMALOG [Suspect]
     Active Substance: INSULIN LISPRO
     Dosage: 250 U, PRN (UP TO 250 UNITS OF INSULIN PER DAY)
     Route: 058

REACTIONS (3)
  - Insulin resistance [Not Recovered/Not Resolved]
  - Illness [Recovered/Resolved]
  - Blood glucose increased [Recovered/Resolved]
